FAERS Safety Report 5512547-5 (Version None)
Quarter: 2007Q4

REPORT INFORMATION
  Report Type: 
  Country: None (occurrence: None)
  Receive Date: 20071112
  Receipt Date: 20070831
  Transmission Date: 20080405
  Serious: No
  Sender: FDA-Public Use
  Company Number: A0673037A

PATIENT
  Age: 51 Year
  Sex: Female

DRUGS (3)
  1. AVANDAMET [Suspect]
     Dosage: 1TAB TWICE PER DAY
     Route: 048
     Dates: start: 20070813, end: 20070814
  2. ATIVAN [Concomitant]
  3. COMPAZINE [Concomitant]

REACTIONS (10)
  - ANXIETY [None]
  - BLOOD GLUCOSE INCREASED [None]
  - DROOLING [None]
  - INSOMNIA [None]
  - OEDEMA PERIPHERAL [None]
  - PALPITATIONS [None]
  - PANIC REACTION [None]
  - SKIN DISCOLOURATION [None]
  - TREMOR [None]
  - VISION BLURRED [None]
